FAERS Safety Report 24383313 (Version 1)
Quarter: 2024Q4

REPORT INFORMATION
  Report Type: Spontaneous
  Country: US (occurrence: US)
  Receive Date: 20241001
  Receipt Date: 20241001
  Transmission Date: 20250114
  Serious: No
  Sender: CATALYST PHARMA
  Company Number: US-CATALYST PHARMACEUTICALS-US-CATA-24-00783

PATIENT
  Sex: Male
  Weight: 19.297 kg

DRUGS (6)
  1. AGAMREE [Suspect]
     Active Substance: VAMOROLONE
     Indication: Duchenne muscular dystrophy
     Dosage: 2.9 ML
     Route: 048
     Dates: start: 20240606, end: 2024
  2. AGAMREE [Suspect]
     Active Substance: VAMOROLONE
     Dosage: 1 ML DAILY
     Route: 048
     Dates: start: 2024
  3. AMOXICILLIN [Suspect]
     Active Substance: AMOXICILLIN
     Indication: Pharyngitis streptococcal
     Dosage: UNKNOWN
     Route: 065
  4. MELATONIN GUMMIES [Concomitant]
     Indication: Product used for unknown indication
     Dosage: 2 AS NEEDED
     Route: 065
  5. OLLY KIDS MULTI + PROBIOTIC [Concomitant]
     Indication: Product used for unknown indication
     Dosage: 2 GUMMIES DAILY
     Route: 065
  6. LYNX CLINICAL TRIAL [Concomitant]
     Indication: Product used for unknown indication
     Dosage: DAILY
     Route: 048

REACTIONS (3)
  - Rash [Recovered/Resolved]
  - Rash [Recovered/Resolved]
  - Pharyngitis streptococcal [Recovered/Resolved]

NARRATIVE: CASE EVENT DATE: 20240101
